FAERS Safety Report 23784573 (Version 5)
Quarter: 2024Q2

REPORT INFORMATION
  Report Type: Spontaneous
  Country: US (occurrence: US)
  Receive Date: 20240425
  Receipt Date: 20240528
  Transmission Date: 20240716
  Serious: No
  Sender: FDA-Public Use
  Company Number: US-ALKERMES INC.-ALK-2024-001007

PATIENT
  Sex: Female

DRUGS (2)
  1. ARISTADA [Suspect]
     Active Substance: ARIPIPRAZOLE LAUROXIL
     Indication: Mood swings
     Dosage: 882 MILLIGRAM, Q25D
     Route: 030
     Dates: start: 20240325
  2. ARISTADA INITIO [Suspect]
     Active Substance: ARIPIPRAZOLE LAUROXIL
     Indication: Mood swings
     Dosage: 675 MILLIGRAM, ONE TIME DOSE
     Route: 030
     Dates: start: 20240325, end: 20240325

REACTIONS (10)
  - Product administered at inappropriate site [Recovered/Resolved]
  - Off label use [Unknown]
  - Skin exfoliation [Unknown]
  - Feeling abnormal [Unknown]
  - Stress [Unknown]
  - Injection site mass [Recovered/Resolved]
  - Injection site pain [Recovered/Resolved]
  - Injection site erythema [Unknown]
  - Akathisia [Unknown]
  - Insomnia [Unknown]

NARRATIVE: CASE EVENT DATE: 20240101
